FAERS Safety Report 10143827 (Version 5)
Quarter: 2014Q2

REPORT INFORMATION
  Report Type: Report from Study
  Country: IN (occurrence: IN)
  Receive Date: 20140430
  Receipt Date: 20140630
  Transmission Date: 20141212
  Serious: Yes (Other)
  Sender: FDA-Public Use
  Company Number: IN-GLAXOSMITHKLINE-Z0022567A

PATIENT
  Age: 33 Year
  Sex: Female
  Weight: 53 kg

DRUGS (10)
  1. LAPATINIB [Suspect]
     Indication: BREAST CANCER METASTATIC
     Dosage: 1000MG PER DAY
     Route: 048
     Dates: start: 20130218
  2. TRASTUZUMAB [Suspect]
     Indication: BREAST CANCER METASTATIC
     Dosage: 6MGK EVERY 3 WEEKS
     Route: 042
     Dates: start: 20130218
  3. LETROZOLE [Suspect]
     Indication: BREAST CANCER METASTATIC
     Dosage: 2.5MG PER DAY
     Route: 048
     Dates: start: 20130218
  4. CARDACE [Concomitant]
     Indication: CARDIAC DISORDER
     Dosage: 1.25MG PER DAY
     Route: 048
     Dates: start: 20130620
  5. METOPROLOL [Concomitant]
     Indication: CARDIAC DISORDER
     Dosage: 12.5MG PER DAY
     Route: 048
     Dates: start: 20130703
  6. ASCORBIC ACID + FOLIC ACID + VITAMIN B [Concomitant]
     Indication: HYPOVITAMINOSIS
     Dosage: 1CAP PER DAY
     Route: 048
     Dates: start: 20130218
  7. FOLVITE [Concomitant]
     Indication: SUPPLEMENTATION THERAPY
     Dosage: 5MG SINGLE DOSE
     Route: 048
     Dates: start: 20130218
  8. PANTOCID [Concomitant]
     Indication: PROPHYLAXIS
     Dosage: 40MG TWICE PER DAY
     Route: 048
     Dates: start: 20130218
  9. OSTEO-CAL [Concomitant]
     Indication: CALCIUM DEFICIENCY
     Dosage: 1000MG PER DAY
     Route: 048
     Dates: start: 20100101
  10. CINCHOCAINE + HYDROCORTISONE [Concomitant]
     Indication: RASH
     Dosage: 1APP PER DAY
     Route: 061
     Dates: start: 20130401

REACTIONS (1)
  - Cardiac disorder [Recovered/Resolved with Sequelae]
